FAERS Safety Report 10259896 (Version 1)
Quarter: 2014Q2

REPORT INFORMATION
  Report Type: Spontaneous
  Country: US (occurrence: US)
  Receive Date: 20140625
  Receipt Date: 20140625
  Transmission Date: 20141212
  Serious: No
  Sender: FDA-Public Use
  Company Number: US-009507513-1406USA012122

PATIENT
  Age: 5 Year
  Sex: Male
  Weight: 28.57 kg

DRUGS (1)
  1. CLARITIN CHEWABLE TABLETS [Suspect]
     Indication: PRODUCT USED FOR UNKNOWN INDICATION
     Dosage: 45 MG, ONCE
     Route: 048

REACTIONS (1)
  - Accidental overdose [Unknown]
